FAERS Safety Report 6723985-7 (Version None)
Quarter: 2010Q2

REPORT INFORMATION
  Report Type: 
  Country: None (occurrence: None)
  Receive Date: 20100513
  Receipt Date: 20100505
  Transmission Date: 20101027
  Serious: Yes (Death)
  Sender: FDA-Public Use
  Company Number: US-ROCHE-688007

PATIENT
  Sex: Female
  Weight: 81.6 kg

DRUGS (1)
  1. CAPECITABINE [Suspect]
     Indication: BREAST CANCER
     Route: 048
     Dates: start: 20100205, end: 20100214

REACTIONS (1)
  - MALIGNANT NEOPLASM PROGRESSION [None]
